FAERS Safety Report 13385525 (Version 1)
Quarter: 2017Q1

REPORT INFORMATION
  Report Type: Spontaneous
  Country: US (occurrence: US)
  Receive Date: 20170330
  Receipt Date: 20170330
  Transmission Date: 20170429
  Serious: No
  Sender: FDA-Public Use
  Company Number: US-AUROBINDO-AUR-APL-2014-12892

PATIENT
  Sex: Female
  Weight: 90.7 kg

DRUGS (5)
  1. ACTOS [Concomitant]
     Active Substance: PIOGLITAZONE HYDROCHLORIDE
     Indication: CANCER PAIN
     Route: 065
  2. PROTONIX [Concomitant]
     Active Substance: PANTOPRAZOLE SODIUM
     Indication: GASTROOESOPHAGEAL REFLUX DISEASE
     Route: 065
  3. ARIMIDEX [Concomitant]
     Active Substance: ANASTROZOLE
     Indication: CANCER PAIN
     Route: 065
  4. GLIMEPIRIDE. [Concomitant]
     Active Substance: GLIMEPIRIDE
     Indication: CANCER PAIN
     Route: 065
  5. GABAPENTIN CAPSULES 300 MG [Suspect]
     Active Substance: GABAPENTIN
     Indication: PRODUCT USED FOR UNKNOWN INDICATION
     Dosage: 300 MG, 3 TIMES A DAY
     Route: 048

REACTIONS (1)
  - Pain in extremity [Not Recovered/Not Resolved]
